FAERS Safety Report 9538613 (Version 1)
Quarter: 2013Q2

REPORT INFORMATION
  Report Type: Spontaneous
  Country: US (occurrence: None)
  Receive Date: 20130517
  Receipt Date: 20130517
  Transmission Date: 20140414
  Serious: Yes (Other)
  Sender: FDA-Public Use
  Company Number: 1000043393

PATIENT
  Sex: 0

DRUGS (9)
  1. VIIBRYD [Suspect]
     Indication: DEPRESSION
     Route: 048
     Dates: start: 20130225, end: 20130304
  2. NORCO (ACETAMINOPHEN, HYDROCODONE) (ACETAMINOPHEN, HYDROCODONE) [Concomitant]
  3. FLEXERIL (CYCLOBENZAPRINE) (CYCLOBENZAPRINE) [Concomitant]
  4. IBUPROFEN (IBUPROFEN) [Concomitant]
  5. TOPROL (METOPROLOL SUCCINATE) (METOPROLOL SUCCINATE) [Concomitant]
  6. LISINOPRIL (LISINOPRIL) [Concomitant]
  7. PHENERGAN (PROMETHAZINE) (PROMETHAZINE) [Concomitant]
  8. XELJANZ (TOFACITINIB CITRATE) (TOFACITINIB CITRATE) [Concomitant]
  9. KLONOPIN [Concomitant]

REACTIONS (1)
  - Acne [None]
